FAERS Safety Report 6196302-1 (Version None)
Quarter: 2009Q2

REPORT INFORMATION
  Report Type: 
  Country: None (occurrence: None)
  Receive Date: 20090520
  Receipt Date: 20090511
  Transmission Date: 20091009
  Serious: Yes (Hospitalization)
  Sender: FDA-Public Use
  Company Number: IT-PFIZER INC-2009156924

PATIENT
  Age: 70 Year

DRUGS (1)
  1. SUTENT [Suspect]
     Indication: RENAL CELL CARCINOMA
     Dosage: 50 MG, 1X/DAY
     Route: 048
     Dates: start: 20080924, end: 20081020

REACTIONS (9)
  - CONFUSIONAL STATE [None]
  - ENCEPHALITIS [None]
  - HAEMANGIOMA [None]
  - LEUKOPENIA [None]
  - MUCOSAL INFLAMMATION [None]
  - PYREXIA [None]
  - SCAR [None]
  - STOMATITIS [None]
  - THROMBOCYTOPENIA [None]
